FAERS Safety Report 12685433 (Version 1)
Quarter: 2016Q3

REPORT INFORMATION
  Report Type: Spontaneous
  Country: US (occurrence: US)
  Receive Date: 20160825
  Receipt Date: 20160825
  Transmission Date: 20161109
  Serious: Yes (Other)
  Sender: FDA-Public Use
  Company Number: US-PFIZER INC-2016401618

PATIENT
  Sex: Male

DRUGS (1)
  1. VIAGRA [Suspect]
     Active Substance: SILDENAFIL CITRATE
     Indication: ERECTILE DYSFUNCTION
     Dosage: UNK, REGULARLY
     Route: 048

REACTIONS (7)
  - Cerebral haemorrhage [Unknown]
  - Malignant melanoma [Unknown]
  - Axillary mass [Unknown]
  - Malignant melanoma in situ [Unknown]
  - Pulmonary mass [Unknown]
  - Central nervous system lesion [Unknown]
  - Intracranial mass [Unknown]

NARRATIVE: CASE EVENT DATE: 20070620
